FAERS Safety Report 8258794-3 (Version None)
Quarter: 2012Q1

REPORT INFORMATION
  Report Type: 
  Country: None (occurrence: None)
  Receive Date: 20120322
  Receipt Date: 20120203
  Transmission Date: 20120608
  Serious: Yes (Hospitalization)
  Sender: FDA-Public Use
  Company Number: UTC-015225

PATIENT
  Age: 61 Year
  Sex: Female
  Weight: 94 kg

DRUGS (2)
  1. TRACLEER [Concomitant]
  2. TYVASO [Suspect]
     Indication: COR PULMONALE CHRONIC
     Dosage: 18-54 MICROGRAMS (4 IN 1 D),INHALATION
     Route: 055
     Dates: start: 20110315

REACTIONS (2)
  - ABNORMAL BEHAVIOUR [None]
  - DELIRIUM [None]
